FAERS Safety Report 9716173 (Version 1)
Quarter: 2013Q4

REPORT INFORMATION
  Report Type: Spontaneous
  Country: GB (occurrence: GB)
  Receive Date: 20131127
  Receipt Date: 20131127
  Transmission Date: 20140711
  Serious: Yes (Other)
  Sender: FDA-Public Use
  Company Number: GB-BAYER-2013-144255

PATIENT
  Sex: Male
  Weight: 1.75 kg

DRUGS (4)
  1. ACETYLSALICYLIC ACID({=100 MG) [Suspect]
     Route: 064
  2. LEVOTHYROXINE [Concomitant]
     Route: 064
  3. BETAMETHASONE [Concomitant]
     Route: 064
  4. ENOXAPARIN [Concomitant]
     Route: 064

REACTIONS (7)
  - Low birth weight baby [None]
  - Premature baby [Recovered/Resolved]
  - Foetal heart rate deceleration abnormality [None]
  - Foetal heart rate increased [None]
  - Foetal heart rate abnormal [None]
  - Foetal hypokinesia [None]
  - Foetal exposure during pregnancy [None]
